FAERS Safety Report 12265969 (Version 2)
Quarter: 2017Q4

REPORT INFORMATION
  Report Type: Spontaneous
  Country: CH (occurrence: CH)
  Receive Date: 20160413
  Receipt Date: 20171010
  Transmission Date: 20180320
  Serious: Yes (Hospitalization, Other)
  Sender: FDA-Public Use
  Company Number: CH-PFIZER INC-2016196076

PATIENT
  Age: 68 Year
  Sex: Female

DRUGS (44)
  1. RITUXIMAB. [Concomitant]
     Active Substance: RITUXIMAB
     Dosage: 580 MG, DAILY
     Route: 040
     Dates: start: 20160125, end: 20160125
  2. INSULINE ACTRAPID [Concomitant]
     Dosage: UNK
     Dates: start: 201602, end: 201603
  3. CYTARABINE. [Suspect]
     Active Substance: CYTARABINE
     Indication: B-CELL TYPE ACUTE LEUKAEMIA
     Dosage: 30 MG, 1X/DAY
     Route: 037
     Dates: start: 20160129, end: 20160129
  4. METHOTREXATE SODIUM. [Suspect]
     Active Substance: METHOTREXATE SODIUM
     Dosage: 15 MG, UNK
     Route: 037
     Dates: start: 20160201, end: 20160201
  5. DAUNORUBICIN [Concomitant]
     Active Substance: DAUNORUBICIN
     Dosage: 53 MG, 1X/DAY
     Dates: start: 20160123, end: 20160123
  6. DAUNORUBICIN [Concomitant]
     Active Substance: DAUNORUBICIN
     Dosage: 53 MG, 1X/DAY
     Dates: start: 20160207, end: 20160207
  7. VINCRISTINE [Concomitant]
     Active Substance: VINCRISTINE
     Dosage: 2 MG, WEEKLY
     Dates: start: 20160123, end: 20160206
  8. BACTRIM [Concomitant]
     Active Substance: SULFAMETHOXAZOLE\TRIMETHOPRIM
     Dosage: 800 MG, 3X/WEEK
     Route: 048
     Dates: start: 20160119, end: 20160220
  9. VORICONAZOLE. [Concomitant]
     Active Substance: VORICONAZOLE
     Dosage: 240 MG, 2X/DAY
     Dates: start: 20160215, end: 20160217
  10. VIMPAT [Concomitant]
     Active Substance: LACOSAMIDE
     Dosage: UNK
     Dates: start: 20160222
  11. METHOTREXATE SODIUM. [Suspect]
     Active Substance: METHOTREXATE SODIUM
     Indication: B-CELL TYPE ACUTE LEUKAEMIA
     Dosage: 15 MG, UNK
     Route: 037
     Dates: start: 20160121, end: 20160121
  12. HYDROCORTISONE. [Concomitant]
     Active Substance: HYDROCORTISONE
     Dosage: 30 MG, DAILY
     Route: 037
     Dates: start: 20160201, end: 20160201
  13. RITUXIMAB. [Concomitant]
     Active Substance: RITUXIMAB
     Dosage: 670 MG, DAILY
     Route: 040
     Dates: start: 20160204, end: 20160204
  14. PIPERACILLIN/TAZOBACTAM [Interacting]
     Active Substance: PIPERACILLIN SODIUM\TAZOBACTAM SODIUM
     Dosage: 4500 MG, 3X/DAY
     Route: 040
     Dates: start: 20160220, end: 20160304
  15. DAUNORUBICIN [Concomitant]
     Active Substance: DAUNORUBICIN
     Dosage: 53 MG, 1X/DAY
     Dates: start: 20160124, end: 20160124
  16. DAUNORUBICIN [Concomitant]
     Active Substance: DAUNORUBICIN
     Dosage: 53 MG, 1X/DAY
     Dates: start: 20160125, end: 20160125
  17. AMBISOME [Concomitant]
     Active Substance: AMPHOTERICIN B
     Dosage: 300 MG, 1X/DAY
     Route: 040
     Dates: start: 20160217, end: 20160309
  18. RIVOTRIL [Concomitant]
     Active Substance: CLONAZEPAM
     Dosage: UNK
     Dates: start: 20160222, end: 20160304
  19. PROPOFOL. [Concomitant]
     Active Substance: PROPOFOL
     Dosage: UNK
     Dates: start: 201602
  20. NOREPINEPHRINE. [Concomitant]
     Active Substance: NOREPINEPHRINE
     Dosage: UNK
     Dates: start: 201602, end: 201602
  21. CYTARABINE. [Suspect]
     Active Substance: CYTARABINE
     Dosage: 30 MG, 1X/DAY
     Route: 037
     Dates: start: 20160201, end: 20160201
  22. METHOTREXATE SODIUM. [Suspect]
     Active Substance: METHOTREXATE SODIUM
     Dosage: 15 MG, UNK
     Route: 037
     Dates: start: 20160129, end: 20160129
  23. PIPERACILLIN/TAZOBACTAM [Interacting]
     Active Substance: PIPERACILLIN SODIUM\TAZOBACTAM SODIUM
     Dosage: 4500 MG, 3X/DAY
     Route: 040
     Dates: start: 20160204, end: 20160214
  24. PREDNISONE. [Concomitant]
     Active Substance: PREDNISONE
     Dosage: 100 MG, 1X/DAY
     Route: 048
     Dates: start: 20160119, end: 20160129
  25. DAUNORUBICIN [Concomitant]
     Active Substance: DAUNORUBICIN
     Dosage: 53 MG, 1X/DAY
     Dates: start: 20160206, end: 20160206
  26. ALLOPURINOL. [Concomitant]
     Active Substance: ALLOPURINOL
     Dosage: UNK
     Dates: start: 20160119
  27. AMIKACIN [Concomitant]
     Active Substance: AMIKACIN
     Dosage: 900 MG, UNK
     Dates: start: 20160219, end: 20160219
  28. FENTANYL. [Concomitant]
     Active Substance: FENTANYL
     Dosage: UNK
     Dates: start: 201602, end: 201603
  29. NICARDIPINE [Concomitant]
     Active Substance: NICARDIPINE
     Dosage: UNK
     Dates: start: 201602, end: 201603
  30. MERONEM [Interacting]
     Active Substance: MEROPENEM
     Dosage: 2000 MG, 3X/DAY
     Route: 040
     Dates: start: 20160214
  31. HYDROCORTISONE. [Concomitant]
     Active Substance: HYDROCORTISONE
     Dosage: 30 MG, DAILY
     Route: 037
     Dates: start: 20160129, end: 20160129
  32. RITUXIMAB. [Concomitant]
     Active Substance: RITUXIMAB
     Dosage: 90 MG, DAILY
     Route: 040
     Dates: start: 20160123, end: 20160123
  33. CYCLOPHOSPHAMIDE. [Concomitant]
     Active Substance: CYCLOPHOSPHAMIDE
     Dosage: 1335 MG, 1X/DAY
     Dates: start: 20160123, end: 20160123
  34. GRANOCYTE [Concomitant]
     Active Substance: LENOGRASTIM
     Dosage: UNK
     Route: 058
     Dates: start: 201601, end: 20160304
  35. METOCLOPRAMIDE. [Concomitant]
     Active Substance: METOCLOPRAMIDE
     Dosage: UNK
     Dates: start: 201601
  36. ACICLOVIR [Concomitant]
     Active Substance: ACYCLOVIR
     Dosage: 350 MG, 2X/DAY
     Route: 040
     Dates: start: 20160119, end: 20160222
  37. FLUCONAZOLE. [Concomitant]
     Active Substance: FLUCONAZOLE
     Dosage: 400 MG, 4X/WEEK
     Route: 048
     Dates: start: 20160119, end: 20160216
  38. KEPPRA [Concomitant]
     Active Substance: LEVETIRACETAM
     Dosage: UNK
     Dates: start: 20160215
  39. KONAKION [Concomitant]
     Active Substance: PHYTONADIONE
     Dosage: UNK
     Dates: start: 2016
  40. RANITIDINE. [Concomitant]
     Active Substance: RANITIDINE
     Dosage: UNK
     Dates: start: 20160215, end: 20160307
  41. MIDAZOLAM [Concomitant]
     Active Substance: MIDAZOLAM HYDROCHLORIDE
     Dosage: UNK
     Dates: start: 201602, end: 201603
  42. ASPARAGINASE [Suspect]
     Active Substance: ASPARAGINASE
     Indication: B-CELL TYPE ACUTE LEUKAEMIA
     Dosage: 10600 IU, DAY 1 EVERY 10 DAYS
     Route: 040
     Dates: start: 20160123, end: 20160211
  43. CYCLOPHOSPHAMIDE. [Concomitant]
     Active Substance: CYCLOPHOSPHAMIDE
     Dosage: 1335 MG, 1X/DAY
     Dates: start: 20160206, end: 20160206
  44. ONDANSETRON [Concomitant]
     Active Substance: ONDANSETRON
     Dosage: UNK
     Dates: start: 201601

REACTIONS (15)
  - Status epilepticus [Recovering/Resolving]
  - Hyperammonaemia [Recovered/Resolved]
  - Pyrexia [Unknown]
  - Encephalitis [Not Recovered/Not Resolved]
  - Neutropenic colitis [Unknown]
  - Encephalopathy [Not Recovered/Not Resolved]
  - Anorectal cellulitis [Unknown]
  - Epilepsy [Recovering/Resolving]
  - Bronchopulmonary aspergillosis [Unknown]
  - Agranulocytosis [Unknown]
  - Drug interaction [Unknown]
  - Bacteraemia [Unknown]
  - Sepsis [Unknown]
  - Altered state of consciousness [Not Recovered/Not Resolved]
  - Pseudomonas infection [Unknown]

NARRATIVE: CASE EVENT DATE: 20160203
